FAERS Safety Report 13961701 (Version 2)
Quarter: 2017Q4

REPORT INFORMATION
  Report Type: Spontaneous
  Country: US (occurrence: US)
  Receive Date: 20170912
  Receipt Date: 20171005
  Transmission Date: 20180320
  Serious: No
  Sender: FDA-Public Use
  Company Number: US-ASTRAZENECA-2013SE71495

PATIENT
  Age: 49 Year
  Sex: Female

DRUGS (2)
  1. ZOMIG ZMT [Suspect]
     Active Substance: ZOLMITRIPTAN
     Indication: HEADACHE
     Dosage: 2.5MG AS REQUIRED
     Route: 048
     Dates: start: 201103
  2. ZOMIG ZMT [Suspect]
     Active Substance: ZOLMITRIPTAN
     Indication: HEADACHE
     Route: 048
     Dates: start: 201103

REACTIONS (4)
  - Nasal congestion [Unknown]
  - Nasopharyngitis [Not Recovered/Not Resolved]
  - Headache [Unknown]
  - Speech disorder [Unknown]
